FAERS Safety Report 19950598 (Version 1)
Quarter: 2021Q4

REPORT INFORMATION
  Report Type: Spontaneous
  Country: US (occurrence: US)
  Receive Date: 20211014
  Receipt Date: 20211014
  Transmission Date: 20220303
  Serious: No
  Sender: FDA-Public Use
  Company Number: 2021A750009

PATIENT
  Sex: Male
  Weight: 63.5 kg

DRUGS (2)
  1. PULMICORT FLEXHALER [Suspect]
     Active Substance: BUDESONIDE
     Indication: Asthma
     Route: 055
  2. PULMICORT FLEXHALER [Suspect]
     Active Substance: BUDESONIDE
     Indication: Asthma
     Dosage: 90 MCG, 1 PUFF DAILY
     Route: 055
     Dates: start: 20210920

REACTIONS (4)
  - Visual impairment [Unknown]
  - Product dose omission issue [Unknown]
  - Device use issue [Unknown]
  - Device malfunction [Unknown]
